FAERS Safety Report 4471845-7 (Version None)
Quarter: 2004Q4

REPORT INFORMATION
  Report Type: 
  Country: None (occurrence: None)
  Receive Date: 20041006
  Receipt Date: 20040923
  Transmission Date: 20050328
  Serious: Yes (Other)
  Sender: FDA-Public Use
  Company Number: 2004070466

PATIENT
  Sex: Male

DRUGS (2)
  1. CARDURA XL [Suspect]
     Indication: HYPERTENSION
     Dosage: 4 MG (4 MG, 1 IN 1 D), ORAL
     Route: 048
  2. ATENOLOL [Concomitant]

REACTIONS (3)
  - INCONTINENCE [None]
  - POST PROCEDURAL COMPLICATION [None]
  - PROSTATE CANCER [None]
